FAERS Safety Report 5922293-1 (Version None)
Quarter: 2008Q3

REPORT INFORMATION
  Report Type: 
  Country: None (occurrence: None)
  Receive Date: 20080909
  Receipt Date: 20071205
  Transmission Date: 20090109
  Serious: Yes (Hospitalization)
  Sender: FDA-Public Use
  Company Number: 163-20785-07120316 (0)

PATIENT
  Age: 60 Year
  Sex: Female
  Weight: 80.4 kg

DRUGS (19)
  1. THALOMID [Suspect]
     Indication: MULTIPLE MYELOMA
     Dosage: 200MG - 100MG, ORAL
     Route: 048
     Dates: start: 20050806, end: 20071123
  2. DEXAMETHASONE TAB [Suspect]
     Indication: MULTIPLE MYELOMA
     Dosage: 40MG  20MG
     Dates: start: 20050806, end: 20071116
  3. VELCADE [Suspect]
     Indication: MULTIPLE MYELOMA
     Dates: start: 20050803, end: 20070908
  4. CISPLATIN [Suspect]
     Indication: MULTIPLE MYELOMA
     Dates: start: 20050806, end: 20060707
  5. ADRIAMYCIN PFS [Suspect]
     Indication: MULTIPLE MYELOMA
     Dates: start: 20050806, end: 20060707
  6. CYCLOPHOSPHAMIDE [Suspect]
     Indication: MULTIPLE MYELOMA
     Dates: start: 20050806, end: 20060707
  7. ETOPOSIDE [Suspect]
     Indication: MULTIPLE MYELOMA
     Dates: start: 20050806, end: 20060707
  8. MELPHALAN (MELPHALAN) [Suspect]
     Indication: MULTIPLE MYELOMA
     Dates: start: 20051101, end: 20051227
  9. SYNTHROID (LEVOTHYROXINE SODIUM) (TABLETS) [Concomitant]
  10. ACYCLOVIR (ACICLOVIR) (TABLETS) [Concomitant]
  11. VITAMIN C (ASCORBIC ACID) (TABLETS) [Concomitant]
  12. MULTIVITAMINS (MULTIVITAMINS) (TABLETS) [Concomitant]
  13. LEVAQUIN [Concomitant]
  14. FOLIC ACID (FOLIC ACID) (TABLETS) [Concomitant]
  15. ACIPHEX [Concomitant]
  16. HYDROCODONE-ACETAMINOPHEN (VICODIN) (TABLETS) [Concomitant]
  17. FLUCONAZOLE (FLUCONAZOLE) (TABLETS) [Concomitant]
  18. SENNA-GEN (SENNA) (TABLETS) [Concomitant]
  19. DOCUSATE SODIUM (DOCUSATE SODIUM) (CAPSULES) [Concomitant]

REACTIONS (1)
  - STREPTOCOCCAL BACTERAEMIA [None]
